APPROVED DRUG PRODUCT: LIDOCAINE HYDROCHLORIDE
Active Ingredient: LIDOCAINE HYDROCHLORIDE
Strength: 2%
Dosage Form/Route: SOLUTION;ORAL
Application: A087872 | Product #001 | TE Code: AT
Applicant: PHARMOBEDIENT CONSULTING LLC
Approved: Nov 18, 1982 | RLD: No | RS: No | Type: RX